FAERS Safety Report 4755162-3 (Version None)
Quarter: 2005Q3

REPORT INFORMATION
  Report Type: 
  Country: None (occurrence: None)
  Receive Date: 20050829
  Receipt Date: 20050819
  Transmission Date: 20060218
  Serious: Yes (Hospitalization)
  Sender: FDA-Public Use
  Company Number: US-JNJFOC-20050804819

PATIENT
  Sex: Female
  Weight: 67.13 kg

DRUGS (11)
  1. INFLIXIMAB [Suspect]
     Route: 042
  2. INFLIXIMAB [Suspect]
     Route: 042
  3. INFLIXIMAB [Suspect]
     Route: 042
  4. INFLIXIMAB [Suspect]
     Route: 042
  5. INFLIXIMAB [Suspect]
     Route: 042
  6. INFLIXIMAB [Suspect]
     Route: 042
  7. INFLIXIMAB [Suspect]
     Indication: CROHN'S DISEASE
     Route: 042
  8. MESALAMINE [Suspect]
     Indication: CROHN'S DISEASE
  9. NARCOTIC ANALGESICS [Suspect]
     Indication: CROHN'S DISEASE
  10. ANTIDEPRESSANTS [Suspect]
     Indication: CROHN'S DISEASE
  11. PREDNISONE TAB [Suspect]
     Indication: CROHN'S DISEASE

REACTIONS (5)
  - ANAEMIA [None]
  - CHEST DISCOMFORT [None]
  - DYSPNOEA [None]
  - METASTASES TO LIVER [None]
  - RECTAL CANCER METASTATIC [None]
